FAERS Safety Report 8836582 (Version 2)
Quarter: 2013Q2

REPORT INFORMATION
  Report Type: Spontaneous
  Country: US (occurrence: None)
  Receive Date: 20121009
  Receipt Date: 20130503
  Transmission Date: 20140414
  Serious: Yes (Other)
  Sender: FDA-Public Use
  Company Number: 2012-002151

PATIENT
  Age: 72 Year
  Sex: Female

DRUGS (15)
  1. ACTONEL (RISEDRONATE SODIUM) TABLET, 150MG [Suspect]
     Indication: OSTEOPOROSIS
     Route: 048
     Dates: start: 201003, end: 201103
  2. FOSAMAX (ALENDRONATE SODIUM) [Suspect]
     Indication: OSTEOPOROSIS
     Dates: start: 20031124, end: 200508
  3. BONIVA [Suspect]
     Indication: OSTEOPOROSIS
     Route: 048
     Dates: start: 200508, end: 201002
  4. CRESTOR (ROSUVASTATIN CALCIUM) [Concomitant]
  5. LEXAPRO (ESCITALOPRAM OXALATE) [Concomitant]
  6. SEROQUEL (QUETIAPINE FUMARATE) [Concomitant]
  7. ENTOCORT (B UDESONIDE) [Concomitant]
  8. LEVOXYL (LEVOTHYROXINE SODIUM) [Concomitant]
  9. ZANTAC (RANITIDINE HYDROCHLORIDE) [Concomitant]
  10. BUPROPION HCL ER (BUPROPION HYDROCHLORIDE) [Concomitant]
  11. MELOXICAM (MELOXICAM) [Concomitant]
  12. MECLIZINE (MECLOZINE) [Concomitant]
  13. DIAZEPAM (DIAZEPAM) [Concomitant]
  14. LYRICA (PREGABALIN) [Concomitant]
  15. HYDROCODONE BITARTRATE AND ACETAMINOPHEN (HYDROCODONE BITARTRATE, PARACETAMOL) [Concomitant]

REACTIONS (20)
  - Femur fracture [None]
  - Fall [None]
  - Arthralgia [None]
  - Device breakage [None]
  - Fracture displacement [None]
  - Stress fracture [None]
  - Fracture delayed union [None]
  - Device dislocation [None]
  - Surgical failure [None]
  - Spinal compression fracture [None]
  - Fibula fracture [None]
  - Femur fracture [None]
  - Device related infection [None]
  - Alopecia [None]
  - Foot deformity [None]
  - Temporomandibular joint syndrome [None]
  - Muscle abscess [None]
  - Pharyngeal abscess [None]
  - Intervertebral disc protrusion [None]
  - Paraesthesia [None]
